FAERS Safety Report 7037287-5 (Version None)
Quarter: 2010Q4

REPORT INFORMATION
  Report Type: 
  Country: None (occurrence: None)
  Receive Date: 20101011
  Receipt Date: 20100928
  Transmission Date: 20110411
  Serious: Yes (Hospitalization)
  Sender: FDA-Public Use
  Company Number: US-ELI_LILLY_AND_COMPANY-US201009000576

PATIENT
  Sex: Male

DRUGS (15)
  1. FORTEO [Suspect]
     Dosage: 20 UG, DAILY (1/D)
  2. NORVASC [Concomitant]
     Dosage: 5 MG, DAILY (1/D)
  3. LISINOPRIL [Concomitant]
     Dosage: 10 MG, DAILY (1/D)
  4. LEXAPRO [Concomitant]
     Dosage: 20 MG, DAILY (1/D)
  5. TRIAMTERENE AND HYDROCHLOROTHIAZIDE [Concomitant]
  6. NEXIUM [Concomitant]
     Dosage: 20 MG, 2/D
  7. LIPITOR [Concomitant]
     Dosage: 40 MG, DAILY (1/D)
  8. ALLOPURINOL [Concomitant]
     Dosage: 300 MG, DAILY (1/D)
  9. SEROQUEL [Concomitant]
     Dosage: 200 MG, DAILY (1/D)
  10. VITAMINS, OTHER COMBINATIONS [Concomitant]
  11. VITAMIN D [Concomitant]
     Dosage: 50000 UNK, UNK
  12. DRONABINOL [Concomitant]
     Dosage: 5 MG, OTHER
  13. FLEXERIL [Concomitant]
     Dosage: 10 MG, AS NEEDED
  14. XANAX [Concomitant]
     Dosage: 0.5 MG, AS NEEDED
  15. VITAMIN B-12 [Concomitant]
     Dosage: UNK, MONTHLY (1/M)

REACTIONS (3)
  - DISLOCATION OF VERTEBRA [None]
  - NECK PAIN [None]
  - SEROMA [None]
